FAERS Safety Report 17557605 (Version 2)
Quarter: 2020Q2

REPORT INFORMATION
  Report Type: Spontaneous
  Country: IL (occurrence: IL)
  Receive Date: 20200318
  Receipt Date: 20200429
  Transmission Date: 20200713
  Serious: Yes (Hospitalization, Other)
  Sender: FDA-Public Use
  Company Number: IL-ALEXION PHARMACEUTICALS INC.-A202003506

PATIENT
  Age: 16 Month
  Sex: Male
  Weight: 7.1 kg

DRUGS (2)
  1. SOLIRIS [Suspect]
     Active Substance: ECULIZUMAB
     Dosage: 300 MG, Q3W
     Route: 042
     Dates: start: 20190512
  2. SOLIRIS [Suspect]
     Active Substance: ECULIZUMAB
     Indication: ATYPICAL HAEMOLYTIC URAEMIC SYNDROME
     Dosage: 300 MG, QW, 2 DOSES
     Route: 042
     Dates: start: 2019

REACTIONS (5)
  - Nervous system disorder [Not Recovered/Not Resolved]
  - Hypertension [Recovered/Resolved]
  - Seizure [Unknown]
  - Viral infection [Recovered/Resolved]
  - Apallic syndrome [Not Recovered/Not Resolved]

NARRATIVE: CASE EVENT DATE: 20200216
